FAERS Safety Report 11269712 (Version 3)
Quarter: 2016Q2

REPORT INFORMATION
  Report Type: Report from Study
  Country: DE (occurrence: DE)
  Receive Date: 20150714
  Receipt Date: 20160427
  Transmission Date: 20160815
  Serious: Yes (Life-Threatening, Hospitalization, Other)
  Sender: FDA-Public Use
  Company Number: DE-ASTRAZENECA-2015SE66077

PATIENT
  Age: 29720 Day
  Sex: Female

DRUGS (14)
  1. MADOPAR T [Concomitant]
  2. MOXONIDINE [Concomitant]
     Active Substance: MOXONIDINE
  3. FEBUXOSTAT. [Concomitant]
     Active Substance: FEBUXOSTAT
  4. RAMIPRIL. [Concomitant]
     Active Substance: RAMIPRIL
  5. FORMOTEROL FUMARATE DIHYDRATE [Concomitant]
     Active Substance: FORMOTEROL FUMARATE DIHYDRATE
     Dosage: 100/6
  6. ACETYLSALICYLIC ACID [Suspect]
     Active Substance: ASPIRIN
     Indication: THROMBOSIS PROPHYLAXIS
     Dosage: 100 MG DAILY, (NON AZ PRODUCT)
     Route: 048
     Dates: start: 20150212, end: 20150318
  7. FERROUS GLYCINE SULFATE [Concomitant]
     Active Substance: FERROUS GLYCINE SULFATE
  8. TORASEMIDE [Concomitant]
     Active Substance: TORSEMIDE
  9. SPIRONOLACTON [Concomitant]
     Active Substance: SPIRONOLACTONE
  10. VALSARTAN. [Concomitant]
     Active Substance: VALSARTAN
     Dates: start: 20150516
  11. SIMVASTATIN. [Concomitant]
     Active Substance: SIMVASTATIN
     Dates: start: 20150517
  12. METOPROLOL SUCCINATE. [Concomitant]
     Active Substance: METOPROLOL SUCCINATE
  13. TICAGRELOR [Suspect]
     Active Substance: TICAGRELOR
     Indication: THROMBOSIS PROPHYLAXIS
     Route: 048
     Dates: start: 20150212, end: 20150527
  14. PANTOPRAZOLE [Concomitant]
     Active Substance: PANTOPRAZOLE SODIUM

REACTIONS (3)
  - Atrial flutter [Recovered/Resolved]
  - Acute kidney injury [Recovered/Resolved]
  - Accidental overdose [Recovered/Resolved]

NARRATIVE: CASE EVENT DATE: 20150516
